FAERS Safety Report 7630845-6 (Version None)
Quarter: 2011Q3

REPORT INFORMATION
  Report Type: 
  Country: None (occurrence: None)
  Receive Date: 20110723
  Receipt Date: 20110719
  Transmission Date: 20111222
  Serious: Yes (Death)
  Sender: FDA-Public Use
  Company Number: JP-ABBOTT-11P-087-0835102-00

PATIENT
  Sex: Male

DRUGS (5)
  1. HUMIRA [Suspect]
     Indication: PSORIASIS
     Route: 058
     Dates: start: 20100223, end: 20100223
  2. OLOPATADINE HYDROCHLORIDE [Concomitant]
     Indication: PSORIASIS
     Route: 048
     Dates: start: 20091222, end: 20100622
  3. BETAMETHASONE BUTYRATE PROPIONATE [Concomitant]
     Indication: PSORIASIS
     Route: 061
     Dates: start: 20091110, end: 20100622
  4. INFLIXIMAB [Suspect]
     Indication: PSORIASIS
     Route: 058
     Dates: start: 20100713, end: 20100727
  5. HUMIRA [Suspect]
     Dates: start: 20100309, end: 20100622

REACTIONS (1)
  - LUNG NEOPLASM MALIGNANT [None]
